FAERS Safety Report 9316755 (Version 1)
Quarter: 2013Q2

REPORT INFORMATION
  Report Type: Spontaneous
  Country: US (occurrence: US)
  Receive Date: 20130530
  Receipt Date: 20130530
  Transmission Date: 20140414
  Serious: No
  Sender: FDA-Public Use
  Company Number: US-MYLANLABS-2012S1013953

PATIENT
  Sex: Female

DRUGS (2)
  1. ZOLPIDEM TARTRATE TABLETS [Suspect]
     Indication: INSOMNIA
     Route: 048
     Dates: start: 201206
  2. ZOLPIDEM TARTRATE TABLETS [Suspect]
     Indication: INSOMNIA

REACTIONS (4)
  - Somnambulism [Not Recovered/Not Resolved]
  - Sleep-related eating disorder [None]
  - Product substitution issue [None]
  - Product quality issue [None]
